FAERS Safety Report 16189310 (Version 1)
Quarter: 2019Q2

REPORT INFORMATION
  Report Type: Spontaneous
  Country: US (occurrence: US)
  Receive Date: 20190411
  Receipt Date: 20190411
  Transmission Date: 20190711
  Serious: Yes (Other)
  Sender: FDA-Public Use
  Company Number: None

PATIENT
  Age: 69 Year
  Sex: Female

DRUGS (5)
  1. FLUTICASONE 50MCG NASAL SPRAY [Concomitant]
  2. ATORVASTATIN 40MG [Concomitant]
     Active Substance: ATORVASTATIN
  3. CELECOXIB 200MG [Concomitant]
     Active Substance: CELECOXIB
  4. XARELTO [Concomitant]
     Active Substance: RIVAROXABAN
  5. LYNPARZA [Suspect]
     Active Substance: OLAPARIB
     Indication: OVARIAN CANCER METASTATIC
     Route: 048
     Dates: start: 20180223

REACTIONS (2)
  - Myalgia [None]
  - Osteonecrosis [None]

NARRATIVE: CASE EVENT DATE: 20190411
